FAERS Safety Report 10333056 (Version 1)
Quarter: 2014Q3

REPORT INFORMATION
  Report Type: Spontaneous
  Country: US (occurrence: US)
  Receive Date: 20140722
  Receipt Date: 20140722
  Transmission Date: 20150326
  Serious: Yes (Congenital Anomaly, Other)
  Sender: FDA-Public Use
  Company Number: US-ABBVIE-14P-163-1260227-00

PATIENT
  Sex: Female

DRUGS (1)
  1. DEPAKOTE [Suspect]
     Active Substance: DIVALPROEX SODIUM
     Indication: MATERNAL EXPOSURE TIMING UNSPECIFIED
     Route: 064

REACTIONS (15)
  - Psychomotor skills impaired [Unknown]
  - Autism spectrum disorder [Unknown]
  - Pain [Unknown]
  - Asthma [Unknown]
  - Mental impairment [Unknown]
  - Physical disability [Unknown]
  - Activities of daily living impaired [Unknown]
  - Emotional distress [Unknown]
  - Cognitive disorder [Unknown]
  - Convulsion [Unknown]
  - Deafness [Unknown]
  - Developmental delay [Unknown]
  - Abnormal behaviour [Unknown]
  - Foetal exposure during pregnancy [Unknown]
  - Attention deficit/hyperactivity disorder [Unknown]
